FAERS Safety Report 4548120-5 (Version None)
Quarter: 2004Q4

REPORT INFORMATION
  Report Type: 
  Country: None (occurrence: None)
  Receive Date: 20041227
  Receipt Date: 20040927
  Transmission Date: 20050328
  Serious: No
  Sender: FDA-Public Use
  Company Number: 04P-163-0274894-00

PATIENT
  Age: 43 Year
  Sex: Male
  Weight: 79.3795 kg

DRUGS (3)
  1. HUMIRA [Suspect]
     Indication: JUVENILE ARTHRITIS
     Dosage: 40 MG, SUBCUTANEOUS
     Route: 058
     Dates: start: 20040706
  2. METHOTREXATE [Concomitant]
  3. IBUPROFEN [Concomitant]

REACTIONS (2)
  - CONDITION AGGRAVATED [None]
  - JOINT SWELLING [None]
